FAERS Safety Report 6224593-7 (Version None)
Quarter: 2009Q2

REPORT INFORMATION
  Report Type: 
  Country: None (occurrence: None)
  Receive Date: 20090612
  Receipt Date: 20090324
  Transmission Date: 20091009
  Serious: No
  Sender: FDA-Public Use
  Company Number: US-ABBOTT-09P-163-0564475-00

PATIENT
  Sex: Female
  Weight: 62.198 kg

DRUGS (2)
  1. HUMIRA [Suspect]
     Indication: CROHN'S DISEASE
     Dosage: LOADING DOSE
     Route: 058
     Dates: start: 20090310, end: 20090310
  2. HUMIRA [Suspect]

REACTIONS (5)
  - ABDOMINAL PAIN [None]
  - COLD SWEAT [None]
  - INFLUENZA [None]
  - NAUSEA [None]
  - VOMITING [None]
